FAERS Safety Report 8029036-9 (Version None)
Quarter: 2012Q1

REPORT INFORMATION
  Report Type: 
  Country: None (occurrence: None)
  Receive Date: 20120106
  Receipt Date: 20120102
  Transmission Date: 20120608
  Serious: Yes (Other)
  Sender: FDA-Public Use
  Company Number: FR-ELI_LILLY_AND_COMPANY-FR201201000076

PATIENT
  Sex: Male

DRUGS (5)
  1. CIALIS [Suspect]
     Dosage: UNK
     Route: 048
     Dates: start: 20101001
  2. MIGRALGINE [Concomitant]
     Dosage: UNK
     Route: 048
     Dates: start: 20101001
  3. ACETAMINOPHEN [Concomitant]
     Dosage: 0.8 G, QD
     Route: 048
     Dates: start: 20101007, end: 20101010
  4. PRIMPERAN TAB [Concomitant]
     Dosage: 6 DF, QD
     Route: 048
     Dates: start: 20101007
  5. ASPIRIN [Concomitant]
     Dosage: UNK
     Route: 048
     Dates: start: 20101007, end: 20101007

REACTIONS (5)
  - FAECES DISCOLOURED [None]
  - ASTHENIA [None]
  - FATIGUE [None]
  - HEPATITIS FULMINANT [None]
  - MUSCULOSKELETAL STIFFNESS [None]
